FAERS Safety Report 4675264-X (Version None)
Quarter: 2005Q2

REPORT INFORMATION
  Report Type: 
  Country: None (occurrence: None)
  Receive Date: 20050527
  Receipt Date: 20050519
  Transmission Date: 20051028
  Serious: Yes (Hospitalization)
  Sender: FDA-Public Use
  Company Number: US-JNJFOC-20050505048

PATIENT
  Sex: Male
  Weight: 112.04 kg

DRUGS (17)
  1. INFLIXIMAB [Suspect]
     Indication: RHEUMATOID ARTHRITIS
     Route: 042
  2. ASPIRIN [Concomitant]
  3. FOSAMAX [Concomitant]
  4. HYDROCHLOROTHIAZIDE [Concomitant]
  5. ARAVA [Concomitant]
  6. LORATADINE [Concomitant]
  7. FLUOXETINE [Concomitant]
  8. TRAZODONE [Concomitant]
  9. OMEPRAZOLE [Concomitant]
  10. FOLIC ACID [Concomitant]
  11. PREDNISONE TAB [Concomitant]
  12. SIMVASTATIN [Concomitant]
  13. ATROVENT [Concomitant]
  14. TRAMADOL [Concomitant]
  15. CELEBREX [Concomitant]
  16. NOVOLOG [Concomitant]
  17. HUMULIN INSULIN [Concomitant]

REACTIONS (2)
  - ADHESION [None]
  - HAEMANGIOMA OF LIVER [None]
